FAERS Safety Report 9997283 (Version 1)
Quarter: 2014Q1

REPORT INFORMATION
  Report Type: Spontaneous
  Country: US (occurrence: None)
  Receive Date: 20140304
  Receipt Date: 20140304
  Transmission Date: 20141002
  Serious: Yes (Other)
  Sender: FDA-Public Use
  Company Number: RB-59171-2013

PATIENT
  Sex: Female

DRUGS (6)
  1. SUBOXONE [Suspect]
     Dosage: SUBLINGUAL FILM
     Route: 060
     Dates: start: 2012, end: 201309
  2. BUPRENORPHINE [Suspect]
     Route: 060
     Dates: start: 201309, end: 20130925
  3. LAMICTAL [Concomitant]
  4. GEODON [Concomitant]
  5. XANAX [Concomitant]
  6. ADDERALL [Concomitant]

REACTIONS (7)
  - Abdominal pain upper [None]
  - Abdominal distension [None]
  - Gastric disorder [None]
  - Swollen tongue [None]
  - Respiratory distress [None]
  - Drug withdrawal syndrome [None]
  - Wrong technique in drug usage process [None]
